FAERS Safety Report 9206269 (Version 1)
Quarter: 2013Q2

REPORT INFORMATION
  Report Type: Report from Study
  Country: US (occurrence: US)
  Receive Date: 20130403
  Receipt Date: 20130403
  Transmission Date: 20140414
  Serious: Yes (Hospitalization, Other)
  Sender: FDA-Public Use
  Company Number: PHHY2013US031789

PATIENT
  Age: 61 Year
  Sex: Female
  Weight: 52.5 kg

DRUGS (3)
  1. EVEROLIMUS [Suspect]
     Indication: PANCREATIC NEUROENDOCRINE TUMOUR METASTATIC
     Dosage: 10 MG, QD
     Route: 048
     Dates: start: 20121003, end: 20121120
  2. OCTREOTIDE [Suspect]
     Indication: PANCREATIC NEUROENDOCRINE TUMOUR METASTATIC
     Dosage: 20 MG, UNK
     Route: 030
     Dates: start: 20121003
  3. BEVACIZUMAB [Suspect]
     Indication: PANCREATIC NEUROENDOCRINE TUMOUR METASTATIC
     Dosage: 10 MG/KG, UNK
     Route: 042
     Dates: start: 20121003, end: 20121120

REACTIONS (7)
  - Cardiac failure [Unknown]
  - Oedema peripheral [Unknown]
  - Cardiac murmur [Unknown]
  - Jugular vein distension [Unknown]
  - Pleural effusion [Unknown]
  - Left ventricular dysfunction [Unknown]
  - Hypertension [Unknown]
